FAERS Safety Report 16372950 (Version 1)
Quarter: 2019Q2

REPORT INFORMATION
  Report Type: Spontaneous
  Country: US (occurrence: US)
  Receive Date: 20190530
  Receipt Date: 20190530
  Transmission Date: 20190711
  Serious: Yes (Other)
  Sender: FDA-Public Use
  Company Number: US-PFIZER INC-2019226315

PATIENT
  Age: 44 Year
  Sex: Female

DRUGS (14)
  1. BUPRENORPHINE. [Suspect]
     Active Substance: BUPRENORPHINE
     Dosage: UNK
  2. SUBOXONE [Suspect]
     Active Substance: BUPRENORPHINE HYDROCHLORIDE\NALOXONE HYDROCHLORIDE
     Dosage: 8 MG, 4X/DAY (ONE IN THE MORNING, ONE AT LUNCH, ONE AT 3 PM AND ONE AT 6PM)
  3. ZOLOFT [Suspect]
     Active Substance: SERTRALINE HYDROCHLORIDE
     Indication: ANXIETY
     Dosage: 75 MG, UNK
  4. BUPRENORPHINE. [Suspect]
     Active Substance: BUPRENORPHINE
     Dosage: 24 MG, DAILY
     Route: 060
  5. SUBOXONE [Suspect]
     Active Substance: BUPRENORPHINE HYDROCHLORIDE\NALOXONE HYDROCHLORIDE
     Indication: PAIN
     Dosage: 8 MG, 2X/DAY
     Route: 060
  6. ZOLOFT [Suspect]
     Active Substance: SERTRALINE HYDROCHLORIDE
     Dosage: 100 MG, UNK
  7. BUPRENORPHINE. [Suspect]
     Active Substance: BUPRENORPHINE
     Dosage: UNK
  8. SUBOXONE [Suspect]
     Active Substance: BUPRENORPHINE HYDROCHLORIDE\NALOXONE HYDROCHLORIDE
     Indication: DEPRESSION
     Dosage: 16 MG, 1X/DAY
  9. SUBOXONE [Suspect]
     Active Substance: BUPRENORPHINE HYDROCHLORIDE\NALOXONE HYDROCHLORIDE
     Dosage: 32 MG, 1X/DAY
  10. ZOLOFT [Suspect]
     Active Substance: SERTRALINE HYDROCHLORIDE
     Dosage: 25 MG, UNK
  11. BUPRENORPHINE. [Suspect]
     Active Substance: BUPRENORPHINE
     Indication: PAIN
     Dosage: 8 MG, 2X/DAY
     Route: 060
  12. BUPRENORPHINE. [Suspect]
     Active Substance: BUPRENORPHINE
     Dosage: 32 MG, 4X/DAY (ONE IN THE MORNING, ONE AT LUNCH, ONE AT 3PM AND ONE AT 6PM)
     Route: 060
  13. BUPRENORPHINE. [Suspect]
     Active Substance: BUPRENORPHINE
     Dosage: 32 MG, DAILY
     Route: 060
  14. SUBOXONE [Suspect]
     Active Substance: BUPRENORPHINE HYDROCHLORIDE\NALOXONE HYDROCHLORIDE
     Dosage: 24 MG, 1X/DAY

REACTIONS (24)
  - Restless legs syndrome [Unknown]
  - Food poisoning [Unknown]
  - Gastroenteritis viral [Unknown]
  - Hypoaesthesia [Unknown]
  - Intentional underdose [Unknown]
  - Dry skin [Unknown]
  - Tremor [Unknown]
  - Memory impairment [Unknown]
  - Post-traumatic stress disorder [Unknown]
  - Wrong technique in product usage process [Unknown]
  - Irritability [Unknown]
  - Constipation [Unknown]
  - Off label use [Unknown]
  - Inappropriate schedule of product administration [Unknown]
  - Intentional overdose [Unknown]
  - Condition aggravated [Unknown]
  - Drug dependence [Unknown]
  - Diarrhoea [Unknown]
  - Renal failure [Unknown]
  - Dental caries [Unknown]
  - Fatigue [Unknown]
  - Somnolence [Unknown]
  - Drug withdrawal syndrome [Unknown]
  - Prescribed overdose [Unknown]
